FAERS Safety Report 8715610 (Version 2)
Quarter: 2015Q2

REPORT INFORMATION
  Report Type: Report from Study
  Country: US (occurrence: US)
  Receive Date: 20120809
  Receipt Date: 20150604
  Transmission Date: 20150821
  Serious: Yes (Death)
  Sender: FDA-Public Use
  Company Number: US-ROCHE-1098656

PATIENT
  Age: 44 Year
  Sex: Female

DRUGS (2)
  1. ACTIVASE [Suspect]
     Active Substance: ALTEPLASE
     Indication: PULMONARY EMBOLISM
     Dosage: ONE TIME
     Route: 042
  2. ACTIVASE [Suspect]
     Active Substance: ALTEPLASE
     Indication: INFARCTION

REACTIONS (1)
  - Death [Fatal]

NARRATIVE: CASE EVENT DATE: 20100620
